FAERS Safety Report 8386363-3 (Version None)
Quarter: 2012Q2

REPORT INFORMATION
  Report Type: 
  Country: None (occurrence: None)
  Receive Date: 20120525
  Receipt Date: 20120521
  Transmission Date: 20120825
  Serious: Yes (Other)
  Sender: FDA-Public Use
  Company Number: US-BAYER-2012-031114

PATIENT
  Age: 83 Year
  Sex: Male
  Weight: 74.558 kg

DRUGS (6)
  1. NAPROXEN (ALEVE) [Concomitant]
     Dosage: DAILY DOSE 220 MG
  2. EXFORGE [Concomitant]
  3. AMLODIPINE BESYLATE AND VALSARTAN [Concomitant]
  4. LOMOTIL [DIPHENOXYLATE HYDROCHLORIDE] [Concomitant]
  5. NEXAVAR [Suspect]
     Indication: HEPATIC NEOPLASM MALIGNANT
     Dosage: 400 MG, BID
     Route: 048
     Dates: start: 20101104
  6. RANITIDINE [Concomitant]
     Dosage: DAILY DOSE 150 MG

REACTIONS (9)
  - ABDOMINAL PAIN [None]
  - BLOOD ALKALINE PHOSPHATASE INCREASED [None]
  - LIVER FUNCTION TEST ABNORMAL [None]
  - NAUSEA [None]
  - TRANSAMINASES INCREASED [None]
  - RASH [None]
  - HEPATIC NEOPLASM MALIGNANT [None]
  - THERAPEUTIC EMBOLISATION [None]
  - DIARRHOEA [None]
